FAERS Safety Report 8617359-1 (Version None)
Quarter: 2012Q3

REPORT INFORMATION
  Report Type: 
  Country: None (occurrence: None)
  Receive Date: 20120823
  Receipt Date: 20120814
  Transmission Date: 20120928
  Serious: Yes (Hospitalization, Disabling, Other)
  Sender: FDA-Public Use
  Company Number: US-MERCK-1205USA04490

PATIENT

DRUGS (9)
  1. CELEBREX [Concomitant]
     Indication: SWELLING
  2. NAPROXEN [Concomitant]
     Indication: PAIN
     Dosage: UNK
  3. FOSAMAX [Suspect]
     Indication: OSTEOPOROSIS
     Dosage: 70 MG, UNK
     Route: 048
     Dates: start: 20031001, end: 20060420
  4. CELEBREX [Concomitant]
     Indication: MUSCULOSKELETAL STIFFNESS
  5. NAPROXEN [Concomitant]
     Indication: SWELLING
  6. FOSAMAX [Suspect]
     Indication: OSTEOPENIA
  7. FOSAMAX PLUS D [Suspect]
     Indication: OSTEOPOROSIS
     Dosage: 70 MG, UNK
     Route: 048
     Dates: start: 20060508, end: 20090129
  8. CELEBREX [Concomitant]
     Indication: PAIN
     Dosage: UNK
  9. CELEBREX [Concomitant]
     Indication: TENDERNESS

REACTIONS (20)
  - STRESS FRACTURE [None]
  - ABDOMINAL HERNIA REPAIR [None]
  - UPPER LIMB FRACTURE [None]
  - FEMUR FRACTURE [None]
  - LOW TURNOVER OSTEOPATHY [None]
  - ARTHRITIS [None]
  - ADVERSE EVENT [None]
  - FUNGAL INFECTION [None]
  - FEMORAL NECK FRACTURE [None]
  - OSTEOPOROSIS [None]
  - HYPERAEMIA [None]
  - ORAL SURGERY [None]
  - FRACTURE NONUNION [None]
  - OPEN REDUCTION OF FRACTURE [None]
  - BURSITIS [None]
  - FALL [None]
  - SEROMA [None]
  - TOOTH EXTRACTION [None]
  - HAND FRACTURE [None]
  - INFECTION [None]
